FAERS Safety Report 6189432-1 (Version None)
Quarter: 2009Q2

REPORT INFORMATION
  Report Type: 
  Country: None (occurrence: None)
  Receive Date: 20090512
  Receipt Date: 20090512
  Transmission Date: 20091009
  Serious: Yes (Hospitalization)
  Sender: FDA-Public Use
  Company Number: None

PATIENT
  Sex: Male
  Weight: 62 kg

DRUGS (2)
  1. CYTARABINE [Suspect]
     Dosage: 27200 MG
     Dates: end: 20090406
  2. ETOPOSIDE [Suspect]
     Dosage: 2350 MG
     Dates: end: 20090406

REACTIONS (5)
  - ATYPICAL MYCOBACTERIAL INFECTION [None]
  - BRONCHIOLITIS [None]
  - FEBRILE NEUTROPENIA [None]
  - LUNG INFECTION [None]
  - PNEUMONIA [None]
